FAERS Safety Report 25048482 (Version 1)
Quarter: 2025Q1

REPORT INFORMATION
  Report Type: Spontaneous
  Country: GB (occurrence: GB)
  Receive Date: 20250307
  Receipt Date: 20250307
  Transmission Date: 20250409
  Serious: Yes (Other)
  Sender: EMD SERONO INC
  Company Number: GB-LDC-000817

PATIENT
  Sex: Female

DRUGS (2)
  1. CHORIOGONADOTROPIN ALFA [Suspect]
     Active Substance: CHORIOGONADOTROPIN ALFA
     Indication: Product used for unknown indication
  2. PROGESTERONE [Suspect]
     Active Substance: PROGESTERONE
     Indication: Assisted reproductive technology
     Dosage: 400 MG 3 IN A DAY

REACTIONS (15)
  - Urinary retention [Unknown]
  - Alopecia [Unknown]
  - Fatigue [Unknown]
  - Back pain [Unknown]
  - Muscle spasms [Unknown]
  - Flatulence [Unknown]
  - Sleep disorder [Unknown]
  - Abnormal dreams [Unknown]
  - Increased appetite [Unknown]
  - Pollakiuria [Unknown]
  - Hot flush [Unknown]
  - Feeling cold [Unknown]
  - Pelvic pain [Unknown]
  - Abdominal distension [Unknown]
  - Off label use [Unknown]
